FAERS Safety Report 10673835 (Version 1)
Quarter: 2014Q4

REPORT INFORMATION
  Report Type: Spontaneous
  Country: US (occurrence: None)
  Receive Date: 20141222
  Receipt Date: 20141222
  Transmission Date: 20150529
  Serious: Yes (Hospitalization)
  Sender: FDA-Public Use
  Company Number: 20140816

PATIENT
  Age: 17 Year
  Sex: Male

DRUGS (4)
  1. AMLODIPINE [Suspect]
     Active Substance: AMLODIPINE BESYLATE
     Indication: POSTERIOR REVERSIBLE ENCEPHALOPATHY SYNDROME
     Dosage: DOSE NOT PROVIDED
  2. FUROSEMIDE INJECTION, USP (5702-25) 10 MG/ML [Suspect]
     Active Substance: FUROSEMIDE
     Indication: POSTERIOR REVERSIBLE ENCEPHALOPATHY SYNDROME
     Dosage: DOSE NOT PROVIDED
  3. DAPSONE. [Suspect]
     Active Substance: DAPSONE
     Indication: PROPHYLAXIS
     Dosage: DOSE NOT PROVIDED
  4. LEVETIRACETAM INJECTION (0517-3605-01) 500 MG/5 ML [Suspect]
     Active Substance: LEVETIRACETAM
     Indication: POSTERIOR REVERSIBLE ENCEPHALOPATHY SYNDROME
     Dosage: DOSE NOT PROVIDED

REACTIONS (2)
  - Epstein-Barr virus infection [None]
  - Drug reaction with eosinophilia and systemic symptoms [None]
